FAERS Safety Report 11022294 (Version 1)
Quarter: 2015Q2

REPORT INFORMATION
  Report Type: Spontaneous
  Country: IT (occurrence: IT)
  Receive Date: 20150413
  Receipt Date: 20150413
  Transmission Date: 20150821
  Serious: Yes (Death, Other)
  Sender: FDA-Public Use
  Company Number: IT-ELI_LILLY_AND_COMPANY-IT201504002563

PATIENT
  Age: 9 Year
  Sex: Male

DRUGS (1)
  1. SOMATROPIN [Suspect]
     Active Substance: SOMATROPIN
     Indication: GROWTH HORMONE DEFICIENCY
     Dosage: 30 ?G/KG, QD
     Route: 065

REACTIONS (4)
  - Atypical teratoid/rhabdoid tumour of CNS [Fatal]
  - Cerebellar syndrome [Not Recovered/Not Resolved]
  - Brain neoplasm [Fatal]
  - VIIth nerve paralysis [Not Recovered/Not Resolved]
